FAERS Safety Report 10792029 (Version 1)
Quarter: 2015Q1

REPORT INFORMATION
  Report Type: Spontaneous
  Country: US (occurrence: US)
  Receive Date: 20150213
  Receipt Date: 20150213
  Transmission Date: 20150721
  Serious: Yes (Other)
  Sender: FDA-Public Use
  Company Number: US-GLAXOSMITHKLINE-US2014037783

PATIENT
  Age: 74 Year
  Sex: Female

DRUGS (5)
  1. BREO ELLIPTA [Suspect]
     Active Substance: FLUTICASONE FUROATE\VILANTEROL TRIFENATATE
     Indication: BRONCHIAL DISORDER
     Dosage: 1 PUFF(S), QD
     Route: 055
     Dates: start: 20141022, end: 201411
  2. MENEST [Concomitant]
     Active Substance: ESTROGENS, ESTERIFIED
  3. ASPIRIN. [Concomitant]
     Active Substance: ASPIRIN
  4. HYOMAX-SL [Concomitant]
     Active Substance: HYOSCYAMINE SULFATE
  5. BREO ELLIPTA [Suspect]
     Active Substance: FLUTICASONE FUROATE\VILANTEROL TRIFENATATE
     Indication: CHRONIC OBSTRUCTIVE PULMONARY DISEASE
     Dosage: 1 PUFF(S), QOD
     Route: 055
     Dates: start: 201411, end: 20141210

REACTIONS (5)
  - Glaucoma [Recovering/Resolving]
  - Urinary tract infection [Recovered/Resolved]
  - Artificial crown procedure [Not Recovered/Not Resolved]
  - Back pain [Unknown]
  - Intentional product use issue [Unknown]

NARRATIVE: CASE EVENT DATE: 20141028
